FAERS Safety Report 5007072-4 (Version None)
Quarter: 2006Q2

REPORT INFORMATION
  Report Type: 
  Country: None (occurrence: None)
  Receive Date: 20060519
  Receipt Date: 20060428
  Transmission Date: 20061013
  Serious: Yes (Life-Threatening, Hospitalization)
  Sender: FDA-Public Use
  Company Number: JP-BOEHRINGER INGELHEIM PHARMACEUTICALS, INC.-2006-BP-04931NB

PATIENT
  Sex: Female
  Weight: 62.4 kg

DRUGS (4)
  1. MOBIC [Suspect]
     Indication: OSTEOARTHRITIS
     Route: 048
     Dates: start: 20060329
  2. ARIMIDEX [Concomitant]
     Route: 048
     Dates: start: 20040624
  3. KELNAC [Concomitant]
     Route: 048
     Dates: start: 20060329
  4. PURSENNID (SENNOSIDE) [Concomitant]
     Route: 048

REACTIONS (8)
  - CHILLS [None]
  - DISSEMINATED INTRAVASCULAR COAGULATION [None]
  - FEBRILE NEUTROPENIA [None]
  - NEUTROPENIA [None]
  - PYELONEPHRITIS [None]
  - SEPTIC SHOCK [None]
  - SYNCOPE [None]
  - THROMBOCYTOPENIA [None]
